FAERS Safety Report 12069540 (Version 2)
Quarter: 2016Q1

REPORT INFORMATION
  Report Type: Report from Study
  Country: US (occurrence: US)
  Receive Date: 20160211
  Receipt Date: 20160303
  Transmission Date: 20160526
  Serious: Yes (Death)
  Sender: FDA-Public Use
  Company Number: US-AMGEN-USASL2016015534

PATIENT
  Age: 98 Year
  Sex: Female
  Weight: 49.43 kg

DRUGS (2)
  1. PROCRIT [Suspect]
     Active Substance: ERYTHROPOIETIN
     Indication: MYELODYSPLASTIC SYNDROME
     Dosage: 20000 UNIT, EVERY 2 WEEKS
     Route: 058
     Dates: end: 20150708
  2. ASA [Concomitant]
     Active Substance: ASPIRIN
     Dosage: UNK UNK, DAILY X YEARS

REACTIONS (2)
  - Death [Fatal]
  - Off label use [Unknown]

NARRATIVE: CASE EVENT DATE: 20151210
